FAERS Safety Report 20155080 (Version 1)
Quarter: 2021Q4

REPORT INFORMATION
  Report Type: Spontaneous
  Country: JP (occurrence: JP)
  Receive Date: 20211207
  Receipt Date: 20211207
  Transmission Date: 20220303
  Serious: Yes (Hospitalization)
  Sender: FDA-Public Use
  Company Number: JP-TAIHO-TT210440_P_1

PATIENT
  Age: 68 Year
  Sex: Male

DRUGS (4)
  1. LONSURF [Suspect]
     Active Substance: TIPIRACIL HYDROCHLORIDE\TRIFLURIDINE
     Indication: Metastatic gastric cancer
     Dosage: DETAILS NOT REPORTED, 3 CYCLES
     Route: 048
     Dates: start: 201906
  2. KEYTRUDA [Suspect]
     Active Substance: PEMBROLIZUMAB
     Indication: Metastatic gastric cancer
     Dosage: DETAILS NOT REPORTED, 6 CYCLES
     Route: 041
     Dates: start: 201901
  3. CYRAMZA [Concomitant]
     Active Substance: RAMUCIRUMAB
     Indication: Metastatic gastric cancer
     Dosage: DETAILS NOT REPORTED, 3 CYCLES
     Route: 041
     Dates: start: 201906
  4. OTHER ANTIBIOTIC PREPARATIONS(INCLUDING MIXED ANTIBIOTIC [Concomitant]
     Indication: Pyrexia
     Dosage: DETAILS NOT REPORTED
     Route: 065

REACTIONS (5)
  - Mobility decreased [Recovering/Resolving]
  - Pyrexia [Recovered/Resolved]
  - Hyponatraemia [Recovered/Resolved]
  - Cortisol decreased [Recovered/Resolved]
  - Hypophagia [Recovering/Resolving]

NARRATIVE: CASE EVENT DATE: 20190904
